FAERS Safety Report 23307111 (Version 1)
Quarter: 2023Q4

REPORT INFORMATION
  Report Type: Spontaneous
  Country: US (occurrence: US)
  Receive Date: 20231218
  Receipt Date: 20231218
  Transmission Date: 20240109
  Serious: No
  Sender: FDA-Public Use
  Company Number: US-OPELLA-2023OHG016115

PATIENT
  Sex: Male

DRUGS (1)
  1. DULCOLAX SOFT CHEWS MIXED BERRY [Suspect]
     Active Substance: MAGNESIUM HYDROXIDE
     Indication: Product used for unknown indication
     Route: 065
     Dates: start: 20231116

REACTIONS (3)
  - Drug ineffective [Unknown]
  - Product label issue [Unknown]
  - No adverse event [Unknown]

NARRATIVE: CASE EVENT DATE: 20231116
